FAERS Safety Report 9849955 (Version 1)
Quarter: 2014Q1

REPORT INFORMATION
  Report Type: Spontaneous
  Country: AU (occurrence: AU)
  Receive Date: 20140128
  Receipt Date: 20140128
  Transmission Date: 20141002
  Serious: Yes (Hospitalization)
  Sender: FDA-Public Use
  Company Number: AU-SA-2014SA008761

PATIENT
  Age: 82 Year
  Sex: Female

DRUGS (2)
  1. CLOPIDOGREL BISULFATE [Suspect]
     Indication: MYOCARDIAL ISCHAEMIA
     Route: 065
  2. ASPIRIN [Concomitant]
     Indication: MYOCARDIAL ISCHAEMIA

REACTIONS (2)
  - Cholecystitis infective [Recovered/Resolved]
  - Platelet dysfunction [Recovered/Resolved]
